FAERS Safety Report 10872017 (Version 1)
Quarter: 2015Q1

REPORT INFORMATION
  Report Type: Spontaneous
  Country: US (occurrence: US)
  Receive Date: 20150226
  Receipt Date: 20150226
  Transmission Date: 20150721
  Serious: Yes (Death, Hospitalization, Other)
  Sender: FDA-Public Use
  Company Number: US-CELGENE-163-20785-12053408

PATIENT

DRUGS (9)
  1. CARFILZOMIB [Suspect]
     Active Substance: CARFILZOMIB
     Dosage: 20/45 MG/M2
     Route: 041
  2. ACYCLOVIR. [Concomitant]
     Active Substance: ACYCLOVIR
     Indication: ANTIVIRAL PROPHYLAXIS
     Route: 065
  3. CARFILZOMIB [Suspect]
     Active Substance: CARFILZOMIB
     Dosage: 20/27 - 36MG/M2
     Route: 041
  4. LOW-MOLECULAR WEIGHT HEPARIN [Concomitant]
     Active Substance: UNSPECIFIED INGREDIENT
     Indication: PROPHYLAXIS
     Route: 065
  5. ASA [Concomitant]
     Active Substance: ASPIRIN
     Indication: PROPHYLAXIS
     Route: 065
  6. THALOMID [Suspect]
     Active Substance: THALIDOMIDE
     Indication: PLASMA CELL MYELOMA
     Dosage: 100 MILLIGRAM
     Route: 048
  7. CYCLOPHOSPHAMIDE. [Suspect]
     Active Substance: CYCLOPHOSPHAMIDE
     Indication: PLASMA CELL MYELOMA
     Dosage: 300 MILLIGRAM/SQ. METER
     Route: 048
  8. CARFILZOMIB [Suspect]
     Active Substance: CARFILZOMIB
     Indication: PLASMA CELL MYELOMA
     Route: 041
  9. DEXAMETHASONE. [Suspect]
     Active Substance: DEXAMETHASONE
     Indication: PLASMA CELL MYELOMA
     Dosage: 40 MILLIGRAM
     Route: 048

REACTIONS (37)
  - Seizure [Unknown]
  - Hyperglycaemia [Unknown]
  - Lethargy [Unknown]
  - Neuropathy peripheral [Unknown]
  - Somnolence [Unknown]
  - Plasma cell myeloma [Unknown]
  - Pneumonia [Fatal]
  - Ventricular tachycardia [Unknown]
  - Hypertension [Unknown]
  - Acute kidney injury [Unknown]
  - Muscular weakness [Unknown]
  - Lymphopenia [Unknown]
  - Anaemia [Unknown]
  - Peripheral sensory neuropathy [Unknown]
  - Cardiac failure [Unknown]
  - Depressed level of consciousness [Unknown]
  - Constipation [Unknown]
  - Myopathy [Unknown]
  - Conduction disorder [Unknown]
  - Renal disorder [Unknown]
  - Alanine aminotransferase increased [Unknown]
  - Cough [Unknown]
  - Chest pain [Unknown]
  - Syncope [Unknown]
  - Reversible cerebral vasoconstriction syndrome [Unknown]
  - Leukocytosis [Unknown]
  - Embolism [Unknown]
  - Neutropenia [Unknown]
  - Thrombocytopenia [Unknown]
  - Malaise [Unknown]
  - Infusion related reaction [Unknown]
  - Restrictive cardiomyopathy [Unknown]
  - Hypophosphataemia [Unknown]
  - Blood creatinine increased [Unknown]
  - Atrial fibrillation [Unknown]
  - Dyspnoea [Unknown]
  - Fatigue [Unknown]
